FAERS Safety Report 6945721-1 (Version None)
Quarter: 2010Q3

REPORT INFORMATION
  Report Type: 
  Country: None (occurrence: None)
  Receive Date: 20100827
  Receipt Date: 20100820
  Transmission Date: 20110219
  Serious: Yes (Death, Hospitalization)
  Sender: FDA-Public Use
  Company Number: A0806132A

PATIENT
  Age: 78 Year
  Sex: Female

DRUGS (1)
  1. AVANDIA [Suspect]
     Indication: DIABETES MELLITUS
     Dosage: 4MG PER DAY
     Route: 048
     Dates: start: 20010403, end: 20090406

REACTIONS (3)
  - CARDIAC FAILURE CONGESTIVE [None]
  - DEATH [None]
  - ILL-DEFINED DISORDER [None]
